FAERS Safety Report 5314182-0 (Version None)
Quarter: 2007Q2

REPORT INFORMATION
  Report Type: 
  Country: None (occurrence: None)
  Receive Date: 20070501
  Receipt Date: 20070425
  Transmission Date: 20071010
  Serious: Yes (Congenital Anomaly)
  Sender: FDA-Public Use
  Company Number: US-MERCK-0703USA05103

PATIENT

DRUGS (1)
  1. SINGULAIR [Suspect]
     Route: 064

REACTIONS (1)
  - CONGENITAL BOWING OF LONG BONES [None]
